FAERS Safety Report 8200033-3 (Version None)
Quarter: 2012Q1

REPORT INFORMATION
  Report Type: 
  Country: None (occurrence: None)
  Receive Date: 20120312
  Receipt Date: 20120305
  Transmission Date: 20120608
  Serious: No
  Sender: FDA-Public Use
  Company Number: US-PFIZER INC-2012063244

PATIENT
  Sex: Male
  Weight: 81.633 kg

DRUGS (2)
  1. PRISTIQ [Suspect]
     Indication: EMOTIONAL DISTRESS
     Dosage: 25MG, DAILY
     Route: 048
     Dates: start: 20120201
  2. PRISTIQ [Suspect]
     Indication: DEPRESSION
     Dosage: 50 MG, DAILY
     Route: 048
     Dates: start: 20101201

REACTIONS (4)
  - PARAESTHESIA [None]
  - PANIC ATTACK [None]
  - ANGER [None]
  - FEELING JITTERY [None]
